FAERS Safety Report 17582193 (Version 2)
Quarter: 2020Q3

REPORT INFORMATION
  Report Type: Spontaneous
  Country: DE (occurrence: DE)
  Receive Date: 20200325
  Receipt Date: 20200924
  Transmission Date: 20201102
  Serious: Yes (Other)
  Sender: FDA-Public Use
  Company Number: DE-PFIZER INC-2020125258

PATIENT
  Age: 78 Year
  Sex: Female

DRUGS (6)
  1. DACOMITINIB [Suspect]
     Active Substance: DACOMITINIB
     Dosage: 45 MG, 1X/DAY
     Route: 065
     Dates: start: 20191126
  2. DABRAFENIB [Suspect]
     Active Substance: DABRAFENIB
     Dosage: 50 MG (FREQ:12 H)
     Dates: start: 20200304
  3. GILOTRIF [Suspect]
     Active Substance: AFATINIB
     Dosage: 20 MG, 1X/DAY
     Dates: start: 20170523, end: 20190128
  4. GILOTRIF [Suspect]
     Active Substance: AFATINIB
     Indication: ADENOCARCINOMA
     Dosage: 30 MG, 1X/DAY
     Dates: start: 20170303, end: 20170522
  5. DACOMITINIB [Suspect]
     Active Substance: DACOMITINIB
     Dosage: 15 MG, 1X/DAY
     Route: 065
     Dates: start: 20191227
  6. OSIMERTINIB. [Suspect]
     Active Substance: OSIMERTINIB
     Dosage: 40 MG, 1X/DAY
     Route: 065
     Dates: start: 20190129

REACTIONS (6)
  - Toxicity to various agents [Unknown]
  - Dyspnoea [Unknown]
  - Oesophageal stenosis [Unknown]
  - Effusion [Unknown]
  - Rash [Unknown]
  - Diarrhoea [Unknown]
